FAERS Safety Report 7301829-2 (Version None)
Quarter: 2011Q1

REPORT INFORMATION
  Report Type: 
  Country: None (occurrence: None)
  Receive Date: 20110218
  Receipt Date: 20110211
  Transmission Date: 20110831
  Serious: Yes (Other)
  Sender: FDA-Public Use
  Company Number: B0700582A

PATIENT
  Age: 43 Year
  Sex: Male

DRUGS (6)
  1. EFAVIRENZ [Suspect]
     Dates: start: 20050401
  2. LAMIVUDINE-HIV [Suspect]
     Indication: HIV INFECTION
     Route: 065
     Dates: start: 20050401
  3. LOPINAVIR/RITONAVIR [Suspect]
  4. EMTRICITABINE [Concomitant]
  5. TENOFOVIR [Suspect]
     Route: 065
     Dates: start: 20050401
  6. IMMUNOGLOBULINS [Concomitant]

REACTIONS (11)
  - THERMAL BURN [None]
  - NEUROLOGICAL SYMPTOM [None]
  - NERVE INJURY [None]
  - NEUROPATHY PERIPHERAL [None]
  - CONDITION AGGRAVATED [None]
  - DEMYELINATION [None]
  - GUILLAIN-BARRE SYNDROME [None]
  - SKIN ULCER [None]
  - SKIN HYPOPIGMENTATION [None]
  - SKIN LESION [None]
  - SENSORY LOSS [None]
